FAERS Safety Report 10376006 (Version 2)
Quarter: 2014Q3

REPORT INFORMATION
  Report Type: Spontaneous
  Country: US (occurrence: US)
  Receive Date: 20140811
  Receipt Date: 20140811
  Transmission Date: 20150326
  Serious: Yes (Hospitalization)
  Sender: FDA-Public Use
  Company Number: US-GLAXOSMITHKLINE-A0853111A

PATIENT
  Sex: Male
  Weight: 120.5 kg

DRUGS (8)
  1. AVANDIA [Suspect]
     Active Substance: ROSIGLITAZONE MALEATE
     Indication: TYPE 2 DIABETES MELLITUS
     Dosage: 4MG TWICE PER DAY
     Route: 048
     Dates: start: 20001214, end: 200812
  2. ASPIRIN. [Concomitant]
     Active Substance: ASPIRIN
     Dosage: 81MG PER DAY
  3. IBUPROFEN. [Concomitant]
     Active Substance: IBUPROFEN
     Dosage: 800MG THREE TIMES PER DAY
  4. DIAZEPAM. [Concomitant]
     Active Substance: DIAZEPAM
  5. PREDNISONE. [Concomitant]
     Active Substance: PREDNISONE
  6. MORPHINE [Concomitant]
     Active Substance: MORPHINE
  7. AVANDAMET [Suspect]
     Active Substance: METFORMIN HYDROCHLORIDE\ROSIGLITAZONE MALEATE
     Route: 048
     Dates: start: 200506
  8. SOLU-MEDROL [Concomitant]
     Active Substance: METHYLPREDNISOLONE SODIUM SUCCINATE
     Route: 042

REACTIONS (7)
  - Myocardial infarction [Not Recovered/Not Resolved]
  - Sternal fracture [Unknown]
  - Fracture nonunion [Unknown]
  - Atrial fibrillation [Unknown]
  - Atrioventricular block second degree [Unknown]
  - Cardiac failure congestive [Unknown]
  - Arteriosclerosis coronary artery [Unknown]
